FAERS Safety Report 4444474-9 (Version None)
Quarter: 2004Q3

REPORT INFORMATION
  Report Type: 
  Country: None (occurrence: None)
  Receive Date: 20040902
  Receipt Date: 20040813
  Transmission Date: 20050211
  Serious: Yes (Hospitalization)
  Sender: FDA-Public Use
  Company Number: USA040465979

PATIENT
  Age: 79 Year
  Sex: Female
  Weight: 68 kg

DRUGS (2)
  1. FORTEO [Suspect]
     Indication: OSTEOPOROSIS
     Dosage: 20 UG/1 DAY
     Dates: start: 20040401
  2. CALCIUM AND VITAMIN D [Concomitant]

REACTIONS (6)
  - ABASIA [None]
  - ARTHROPATHY [None]
  - BALANCE DISORDER [None]
  - INJECTION SITE URTICARIA [None]
  - LOWER LIMB FRACTURE [None]
  - PHARMACEUTICAL PRODUCT COMPLAINT [None]
